FAERS Safety Report 21781100 (Version 1)
Quarter: 2022Q4

REPORT INFORMATION
  Report Type: Report from Study
  Country: US (occurrence: US)
  Receive Date: 20221227
  Receipt Date: 20221227
  Transmission Date: 20230113
  Serious: No
  Sender: FDA-Public Use
  Company Number: US-ABBVIE-4242757

PATIENT
  Sex: Female

DRUGS (2)
  1. HUMIRA [Suspect]
     Active Substance: ADALIMUMAB
     Indication: Psoriasis
     Route: 058
     Dates: start: 20220722
  2. HUMIRA [Suspect]
     Active Substance: ADALIMUMAB
     Indication: Psoriatic arthropathy

REACTIONS (11)
  - Hair growth abnormal [Unknown]
  - Psoriasis [Not Recovered/Not Resolved]
  - Mobility decreased [Unknown]
  - Bone disorder [Unknown]
  - Drug ineffective [Unknown]
  - Vocal cord disorder [Not Recovered/Not Resolved]
  - Skin laceration [Unknown]
  - Adverse reaction [Unknown]
  - Road traffic accident [Unknown]
  - Visual impairment [Unknown]
  - Tardive dyskinesia [Unknown]
